FAERS Safety Report 6819453-4 (Version None)
Quarter: 2010Q3

REPORT INFORMATION
  Report Type: 
  Country: None (occurrence: None)
  Receive Date: 20100707
  Receipt Date: 20100120
  Transmission Date: 20110219
  Serious: Yes (Death)
  Sender: FDA-Public Use
  Company Number: NL-CELGENEUS-114-21880-10011506

PATIENT
  Sex: Female
  Weight: 76 kg

DRUGS (3)
  1. REVLIMID [Suspect]
     Indication: MULTIPLE MYELOMA
     Route: 048
     Dates: start: 20091223, end: 20100102
  2. REVLIMID [Suspect]
     Route: 048
     Dates: start: 20090828, end: 20091215
  3. PREDNISONE TAB [Concomitant]
     Indication: MULTIPLE MYELOMA
     Dosage: 280MG MONTHLY
     Dates: start: 20090828, end: 20100102

REACTIONS (1)
  - DEATH [None]
